FAERS Safety Report 4637424-3 (Version None)
Quarter: 2005Q2

REPORT INFORMATION
  Report Type: 
  Country: None (occurrence: None)
  Receive Date: 20050328
  Receipt Date: 20050125
  Transmission Date: 20051028
  Serious: No
  Sender: FDA-Public Use
  Company Number: USA040774031

PATIENT
  Age: 53 Year
  Sex: Female
  Weight: 55 kg

DRUGS (3)
  1. STRATTERA [Suspect]
     Indication: ATTENTION DEFICIT/HYPERACTIVITY DISORDER
     Dosage: 40 MG
     Dates: start: 20040121, end: 20040728
  2. METFORMIN [Concomitant]
  3. LEVOTHYROXINE SODIUM [Concomitant]

REACTIONS (3)
  - BLOOD GLUCOSE INCREASED [None]
  - EXERCISE LACK OF [None]
  - HYPERTENSION [None]
